FAERS Safety Report 14858760 (Version 1)
Quarter: 2018Q2

REPORT INFORMATION
  Report Type: Spontaneous
  Country: US (occurrence: US)
  Receive Date: 20180421
  Receipt Date: 20180421
  Transmission Date: 20180711
  Serious: Yes (Death)
  Sender: FDA-Public Use
  Company Number: None

PATIENT
  Age: 89 Year
  Sex: Female
  Weight: 51.75 kg

DRUGS (17)
  1. MULTIVITAMIN [Concomitant]
     Active Substance: VITAMINS
  2. OINTMENTS AND CREAM [Concomitant]
  3. COMFREY OIL [Concomitant]
  4. COLLOIDAL SILVER [Concomitant]
     Active Substance: SILVER
  5. LEMON BALM [Concomitant]
  6. VITAMIN E [Concomitant]
     Active Substance: .ALPHA.-TOCOPHEROL
  7. VITAMIN D3 [Concomitant]
     Active Substance: CHOLECALCIFEROL
  8. B6 [Concomitant]
     Active Substance: PYRIDOXINE HYDROCHLORIDE
  9. ST JOHN OINTMENT [Concomitant]
  10. VITAMIN C [Concomitant]
     Active Substance: ASCORBIC ACID
  11. ACEPHETAMINE [Concomitant]
  12. QUETIAPINE 25MG/GENERIC FOR SEROQUEL - NDC 16729-0145-17 [Suspect]
     Active Substance: QUETIAPINE
     Indication: SLEEP DISORDER
     Route: 048
     Dates: start: 20170701, end: 20180302
  13. LANOLIN OIL [Concomitant]
  14. AMOXICILLIN. [Concomitant]
     Active Substance: AMOXICILLIN
  15. VITAMIN B COMPLEX [Concomitant]
     Active Substance: CYANOCOBALAMIN\DEXPANTHENOL\NIACINAMIDE\PYRIDOXINE HYDROCHLORIDE\RIBOFLAVIN 5^-PHOSPHATE SODIUM\THIAMINE HYDROCHLORIDE\VITAMIN B COMPLEX
  16. MELATONIN [Concomitant]
     Active Substance: MELATONIN
  17. NEOSPORIN [Concomitant]
     Active Substance: BACITRACIN ZINC\NEOMYCIN SULFATE\POLYMYXIN B SULFATE

REACTIONS (2)
  - Seizure [None]
  - Cerebrovascular accident [None]

NARRATIVE: CASE EVENT DATE: 20180303
